FAERS Safety Report 4466082-6 (Version None)
Quarter: 2004Q4

REPORT INFORMATION
  Report Type: 
  Country: None (occurrence: None)
  Receive Date: 20041005
  Receipt Date: 20040907
  Transmission Date: 20050328
  Serious: Yes (Hospitalization)
  Sender: FDA-Public Use
  Company Number: HQWYE002513SEP04

PATIENT
  Sex: Female
  Weight: 71.9 kg

DRUGS (5)
  1. ETANERCEPT [Suspect]
     Indication: RHEUMATOID ARTHRITIS
     Route: 058
     Dates: start: 20020122, end: 20040826
  2. ETANERCEPT [Suspect]
     Route: 058
     Dates: start: 20040906
  3. PREDNISOLONE [Concomitant]
     Dosage: 5 MG DAILY
     Route: 048
     Dates: start: 20040424
  4. VOLTAREN [Concomitant]
     Dosage: 75 MG DAILY
     Route: 048
     Dates: start: 20040424
  5. MUCOSTA [Concomitant]
     Dosage: 200 G DAILY
     Route: 048
     Dates: start: 20040729

REACTIONS (1)
  - CALCULUS URETERIC [None]
